FAERS Safety Report 5480197-5 (Version None)
Quarter: 2007Q4

REPORT INFORMATION
  Report Type: 
  Country: None (occurrence: None)
  Receive Date: 20071009
  Receipt Date: 20071004
  Transmission Date: 20080405
  Serious: Yes (Death)
  Sender: FDA-Public Use
  Company Number: FR-AVENTIS-200713171FR

PATIENT
  Sex: Male

DRUGS (3)
  1. TAXOTERE [Suspect]
     Route: 042
     Dates: start: 20070901, end: 20070901
  2. FLUOROURACIL [Concomitant]
     Route: 042
     Dates: start: 20070901, end: 20070901
  3. CISPLATIN [Concomitant]
     Route: 042
     Dates: start: 20070901, end: 20070901

REACTIONS (1)
  - BONE MARROW FAILURE [None]
